FAERS Safety Report 22220177 (Version 1)
Quarter: 2023Q2

REPORT INFORMATION
  Report Type: Spontaneous
  Country: JP (occurrence: JP)
  Receive Date: 20230417
  Receipt Date: 20230417
  Transmission Date: 20230721
  Serious: Yes (Other)
  Sender: FDA-Public Use
  Company Number: JP-Osmotica_Pharmaceutical_US_LLC-POI0573202300096

PATIENT
  Sex: Female

DRUGS (1)
  1. DIVIGEL [Suspect]
     Active Substance: ESTRADIOL
     Indication: Product used for unknown indication
     Route: 065

REACTIONS (1)
  - Haemorrhage subcutaneous [Unknown]

NARRATIVE: CASE EVENT DATE: 20220301
